FAERS Safety Report 20935917 (Version 2)
Quarter: 2022Q3

REPORT INFORMATION
  Report Type: Spontaneous
  Country: DE (occurrence: DE)
  Receive Date: 20220609
  Receipt Date: 20220715
  Transmission Date: 20221026
  Serious: Yes (Hospitalization, Other)
  Sender: FDA-Public Use
  Company Number: DE-JNJFOC-20220124771

PATIENT
  Age: 58 Year
  Sex: Female
  Weight: 61 kg

DRUGS (35)
  1. SILDENAFIL [Suspect]
     Active Substance: SILDENAFIL
     Indication: Pulmonary arterial hypertension
     Dosage: UNK
     Route: 048
     Dates: start: 20190514, end: 20210817
  2. MACITENTAN [Suspect]
     Active Substance: MACITENTAN
     Indication: Pulmonary arterial hypertension
     Dosage: 10 MILLIGRAM, ONCE A DAY
     Route: 048
     Dates: start: 20190629
  3. SELEXIPAG [Suspect]
     Active Substance: SELEXIPAG
     Indication: Product used for unknown indication
     Dosage: 400 MICROGRAM
     Route: 048
     Dates: start: 20211113
  4. SELEXIPAG [Suspect]
     Active Substance: SELEXIPAG
     Dosage: 600 MICROGRAM
     Route: 048
     Dates: start: 20211120
  5. SELEXIPAG [Suspect]
     Active Substance: SELEXIPAG
     Dosage: 800 MICROGRAM
     Route: 048
     Dates: start: 20211127
  6. SELEXIPAG [Suspect]
     Active Substance: SELEXIPAG
     Dosage: 1000 MICROGRAM
     Route: 048
     Dates: start: 20211204
  7. SELEXIPAG [Suspect]
     Active Substance: SELEXIPAG
     Dosage: 1600 MICROGRAM
     Route: 048
     Dates: start: 20211211
  8. SELEXIPAG [Suspect]
     Active Substance: SELEXIPAG
     Dosage: 2000 MICROGRAM
     Route: 048
     Dates: start: 20211219
  9. SELEXIPAG [Suspect]
     Active Substance: SELEXIPAG
     Dosage: 2400 MICROGRAM
     Route: 048
     Dates: start: 20211226
  10. SELEXIPAG [Suspect]
     Active Substance: SELEXIPAG
     Dosage: 2800 MICROGRAM
     Route: 048
     Dates: start: 20220102
  11. SELEXIPAG [Suspect]
     Active Substance: SELEXIPAG
     Dosage: 1400 MICROGRAM
     Route: 048
     Dates: start: 20220118
  12. SELEXIPAG [Suspect]
     Active Substance: SELEXIPAG
     Dosage: 1200 MICROGRAM
     Route: 048
     Dates: start: 20220127
  13. SELEXIPAG [Suspect]
     Active Substance: SELEXIPAG
     Dosage: 1400 MICROGRAM
     Route: 048
     Dates: start: 20220414
  14. ADCIRCA [Concomitant]
     Active Substance: TADALAFIL
     Indication: Pulmonary arterial hypertension
     Dosage: UNK
     Route: 048
     Dates: start: 20210817
  15. CHOLECALCIFEROL [Concomitant]
     Active Substance: CHOLECALCIFEROL
     Indication: Raynaud^s phenomenon
     Dosage: UNK
     Route: 048
  16. CHOLECALCIFEROL [Concomitant]
     Active Substance: CHOLECALCIFEROL
     Indication: Sjogren^s syndrome
  17. ESIDRIX [Concomitant]
     Active Substance: HYDROCHLOROTHIAZIDE
     Indication: Hypertension
     Dosage: UNK
     Route: 048
  18. FOLIC ACID [Concomitant]
     Active Substance: FOLIC ACID
     Indication: Vitamin supplementation
     Dosage: UNK
     Route: 048
  19. CALCIUM CARBONATE\SODIUM ALGINATE\SODIUM BICARBONATE [Concomitant]
     Active Substance: CALCIUM CARBONATE\SODIUM ALGINATE\SODIUM BICARBONATE
     Indication: Gastrooesophageal reflux disease
     Dosage: UNK
     Route: 048
     Dates: start: 20201218
  20. HYDROXYCHLOROQUINE [Concomitant]
     Active Substance: HYDROXYCHLOROQUINE
     Indication: Scleroderma
     Dosage: UNK
     Route: 048
  21. LEVOTHYROXINE [Concomitant]
     Active Substance: LEVOTHYROXINE
     Indication: Hyperthyroidism
     Dosage: UNK
     Route: 048
  22. LEVOTHYROXINE [Concomitant]
     Active Substance: LEVOTHYROXINE
     Indication: Hypothyroidism
     Dosage: UNK
     Route: 048
     Dates: start: 2020
  23. LORAZEPAM [Concomitant]
     Active Substance: LORAZEPAM
     Indication: Anxiety disorder
     Dosage: UNK
     Route: 065
     Dates: start: 202201
  24. METOCLOPRAMIDE [Concomitant]
     Active Substance: METOCLOPRAMIDE
     Indication: Antiemetic supportive care
     Dosage: UNK
     Route: 048
     Dates: start: 20200123
  25. METHOTREXATE SODIUM [Concomitant]
     Active Substance: METHOTREXATE SODIUM
     Indication: Sjogren^s syndrome
     Dosage: UNK
     Route: 065
  26. METHOTREXATE SODIUM [Concomitant]
     Active Substance: METHOTREXATE SODIUM
     Indication: Raynaud^s phenomenon
     Dosage: UNK
     Route: 058
  27. OXYGEN [Concomitant]
     Active Substance: OXYGEN
     Indication: Dyspnoea
     Dosage: UNK
     Route: 045
     Dates: start: 20190726
  28. PANTOPRAZOLE [Concomitant]
     Active Substance: PANTOPRAZOLE
     Indication: Product used for unknown indication
     Dosage: UNK
     Route: 065
  29. PROMETHAZINE [Concomitant]
     Active Substance: PROMETHAZINE HYDROCHLORIDE
     Indication: Restlessness
     Dosage: UNK
     Route: 065
     Dates: start: 202111
  30. TORSEMIDE [Concomitant]
     Active Substance: TORSEMIDE
     Indication: Diuretic therapy
     Dosage: UNK
     Route: 065
     Dates: start: 2019
  31. TORSEMIDE [Concomitant]
     Active Substance: TORSEMIDE
     Indication: Cardiac failure
     Dosage: UNK
     Route: 048
     Dates: start: 202203
  32. SPIKEVAX [Concomitant]
     Active Substance: ELASOMERAN
     Indication: Prophylaxis
     Dosage: UNK
     Route: 065
     Dates: start: 20210411
  33. SPIKEVAX [Concomitant]
     Active Substance: ELASOMERAN
     Dosage: UNK
     Route: 065
     Dates: start: 20210523
  34. SPIKEVAX [Concomitant]
     Active Substance: ELASOMERAN
     Dosage: UNK
     Route: 065
     Dates: start: 20211202
  35. COMIRNATY [Concomitant]
     Active Substance: TOZINAMERAN
     Indication: Prophylaxis
     Dosage: UNK
     Route: 065
     Dates: start: 20220405

REACTIONS (10)
  - Hypokalaemia [Unknown]
  - Chest discomfort [Not Recovered/Not Resolved]
  - Abdominal pain upper [Unknown]
  - Leukocytosis [Unknown]
  - Gastrointestinal inflammation [Unknown]
  - Herpes zoster [Unknown]
  - Tachycardia [Unknown]
  - Blood uric acid increased [Not Recovered/Not Resolved]
  - Palpitations [Recovered/Resolved]
  - Blood creatinine increased [Not Recovered/Not Resolved]

NARRATIVE: CASE EVENT DATE: 20190726
